FAERS Safety Report 6572577-1 (Version None)
Quarter: 2010Q1

REPORT INFORMATION
  Report Type: 
  Country: None (occurrence: None)
  Receive Date: 20100205
  Receipt Date: 20100126
  Transmission Date: 20100710
  Serious: Yes (Other)
  Sender: FDA-Public Use
  Company Number: US-JNJCH-2010003086

PATIENT
  Age: 55 Year
  Sex: Male
  Weight: 95.3 kg

DRUGS (1)
  1. ADVANCED LISTERINE WITH TARTAR PROTECTION [Suspect]
     Indication: INTENTIONAL DRUG MISUSE
     Dosage: TEXT:UNKNOWN
     Route: 048

REACTIONS (2)
  - DRUG ABUSE [None]
  - INCORRECT ROUTE OF DRUG ADMINISTRATION [None]
